FAERS Safety Report 7101328-7 (Version None)
Quarter: 2010Q4

REPORT INFORMATION
  Report Type: 
  Country: None (occurrence: None)
  Receive Date: 20101115
  Receipt Date: 20101109
  Transmission Date: 20110411
  Serious: Yes (Hospitalization)
  Sender: FDA-Public Use
  Company Number: US-SANOFI-AVENTIS-2010SA063009

PATIENT
  Age: 61 Year
  Sex: Male
  Weight: 96 kg

DRUGS (3)
  1. LANTUS [Suspect]
     Indication: TYPE 2 DIABETES MELLITUS
     Dosage: 55 UNITS IN THE MORNING, 15 UNITS IN THE EVENING
     Route: 058
     Dates: start: 20070107
  2. LANTUS [Suspect]
     Dosage: 55 UNITS IN THE MORNING, 15 UNITS IN THE EVENING
     Route: 058
     Dates: start: 20070107
  3. OPTICLICK [Suspect]
     Indication: TYPE 2 DIABETES MELLITUS
     Dates: start: 20070101

REACTIONS (2)
  - PAIN IN EXTREMITY [None]
  - TENDON RUPTURE [None]
